FAERS Safety Report 24441553 (Version 2)
Quarter: 2024Q4

REPORT INFORMATION
  Report Type: Spontaneous
  Country: EC (occurrence: EC)
  Receive Date: 20241016
  Receipt Date: 20241017
  Transmission Date: 20250115
  Serious: No
  Sender: ROCHE
  Company Number: EC-ROCHE-3492896

PATIENT
  Age: 1 Year
  Sex: Male
  Weight: 10.0 kg

DRUGS (1)
  1. HEMLIBRA [Suspect]
     Active Substance: EMICIZUMAB-KXWH
     Indication: Factor VIII deficiency
     Route: 065
     Dates: start: 202309

REACTIONS (3)
  - Rash pruritic [Recovered/Resolved]
  - Respiratory disorder [Recovered/Resolved]
  - Dermatitis diaper [Recovered/Resolved]

NARRATIVE: CASE EVENT DATE: 20231101
